FAERS Safety Report 11423422 (Version 1)
Quarter: 2015Q3

REPORT INFORMATION
  Report Type: Other
  Country: JP (occurrence: JP)
  Receive Date: 20150827
  Receipt Date: 20150827
  Transmission Date: 20151125
  Serious: Yes (Death, Other)
  Sender: FDA-Public Use
  Company Number: JP-ACTELION-A-CH2015-122975

PATIENT
  Age: 40 Year
  Sex: Male

DRUGS (2)
  1. DABIGATRAN [Concomitant]
     Active Substance: DABIGATRAN
  2. EPOPROSTENOL ACT [Suspect]
     Active Substance: EPOPROSTENOL
     Indication: PULMONARY HYPERTENSION
     Route: 042

REACTIONS (4)
  - Death [Fatal]
  - Pulmonary artery thrombosis [Unknown]
  - Pulmonary endarterectomy [Unknown]
  - Condition aggravated [Unknown]
